FAERS Safety Report 6715421-1 (Version None)
Quarter: 2010Q2

REPORT INFORMATION
  Report Type: 
  Country: None (occurrence: None)
  Receive Date: 20100507
  Receipt Date: 20100429
  Transmission Date: 20101027
  Serious: Yes (Other)
  Sender: FDA-Public Use
  Company Number: US-JNJFOC-20100501400

PATIENT
  Age: 5 Decade
  Sex: Female

DRUGS (1)
  1. NUCYNTA [Suspect]
     Indication: PAIN
     Route: 048

REACTIONS (1)
  - MENTAL DISORDER [None]
